FAERS Safety Report 25756038 (Version 2)
Quarter: 2025Q4

REPORT INFORMATION
  Report Type: Report from Study
  Country: CL (occurrence: CL)
  Receive Date: 20250903
  Receipt Date: 20251229
  Transmission Date: 20260118
  Serious: Yes (Hospitalization, Other)
  Sender: PFIZER
  Company Number: CL-PFIZER INC-PV202500105558

PATIENT
  Age: 61 Year
  Sex: Female

DRUGS (2)
  1. BRAFTOVI [Suspect]
     Active Substance: ENCORAFENIB
     Indication: Metastatic malignant melanoma
     Dosage: UNK
  2. MEKTOVI [Suspect]
     Active Substance: BINIMETINIB
     Indication: Metastatic malignant melanoma
     Dosage: UNK

REACTIONS (6)
  - Altered state of consciousness [Unknown]
  - Asthenia [Unknown]
  - Second primary malignancy [Unknown]
  - Brain neoplasm [Unknown]
  - Skin mass [Unknown]
  - Pain [Unknown]
